FAERS Safety Report 8899997 (Version 1)
Quarter: 2012Q4

REPORT INFORMATION
  Report Type: 
  Country: JP (occurrence: JP)
  Receive Date: 20121109
  Receipt Date: 20121109
  Transmission Date: 20130627
  Serious: Yes (Other)
  Sender: FDA-Public Use
  Company Number: PHHY2012JP102517

PATIENT
  Age: 64 Year
  Sex: Male

DRUGS (2)
  1. DIOVAN [Suspect]
     Dosage: UNK UKN, UNK
     Route: 048
  2. DIOVAN [Suspect]
     Dosage: UNK UKN, UNK (dose increased)
     Route: 048

REACTIONS (4)
  - Gastric haemorrhage [Unknown]
  - Scar [Unknown]
  - Aggression [Unknown]
  - Hypertension [Unknown]
